FAERS Safety Report 5950938-9 (Version None)
Quarter: 2008Q4

REPORT INFORMATION
  Report Type: 
  Country: None (occurrence: None)
  Receive Date: 20081112
  Receipt Date: 20081031
  Transmission Date: 20090506
  Serious: Yes (Other)
  Sender: FDA-Public Use
  Company Number: AU-PFIZER INC-2008092505

PATIENT
  Age: 34 Year
  Sex: Male

DRUGS (2)
  1. DILANTIN [Suspect]
  2. KEPPRA [Concomitant]

REACTIONS (1)
  - CONVULSION [None]
